FAERS Safety Report 13159007 (Version 1)
Quarter: 2017Q1

REPORT INFORMATION
  Report Type: Spontaneous
  Country: US (occurrence: US)
  Receive Date: 20170127
  Receipt Date: 20170127
  Transmission Date: 20170428
  Serious: No
  Sender: FDA-Public Use
  Company Number: US-ENDO PHARMACEUTICALS INC.-2016-006750

PATIENT
  Sex: Female
  Weight: 56.75 kg

DRUGS (3)
  1. BELBUCA [Suspect]
     Active Substance: BUPRENORPHINE HYDROCHLORIDE
     Indication: FIBROMYALGIA
     Route: 002
     Dates: start: 20161108
  2. BELBUCA [Suspect]
     Active Substance: BUPRENORPHINE HYDROCHLORIDE
     Indication: CHRONIC FATIGUE SYNDROME
  3. BELBUCA [Suspect]
     Active Substance: BUPRENORPHINE HYDROCHLORIDE
     Indication: PAIN

REACTIONS (1)
  - Drug ineffective [Not Recovered/Not Resolved]

NARRATIVE: CASE EVENT DATE: 20161108
